FAERS Safety Report 10193232 (Version 1)
Quarter: 2014Q2

REPORT INFORMATION
  Report Type: Spontaneous
  Country: US (occurrence: US)
  Receive Date: 20140524
  Receipt Date: 20140524
  Transmission Date: 20141212
  Serious: No
  Sender: FDA-Public Use
  Company Number: US-SA-2013SA120105

PATIENT
  Sex: Female

DRUGS (4)
  1. LANTUS SOLOSTAR [Suspect]
     Dosage: PRODUCT STARTED ONE YEAR AGO.
     Route: 058
  2. LANTUS SOLOSTAR [Suspect]
     Dosage: DOSE:19 UNIT(S)
     Route: 058
  3. NOVOLOG [Suspect]
     Route: 065
  4. SOLOSTAR [Concomitant]
     Dosage: PRODUCT STARTED ONE YEAR AGO.

REACTIONS (2)
  - Loss of consciousness [Unknown]
  - Blood glucose increased [Unknown]
